FAERS Safety Report 5884168-6 (Version None)
Quarter: 2008Q3

REPORT INFORMATION
  Report Type: 
  Country: None (occurrence: None)
  Receive Date: 20080911
  Receipt Date: 20080828
  Transmission Date: 20090109
  Serious: Yes (Death, Hospitalization, Other)
  Sender: FDA-Public Use
  Company Number: 2008AL006445

PATIENT
  Age: 66 Year
  Sex: Male
  Weight: 70.3075 kg

DRUGS (15)
  1. DIGOXIN [Suspect]
     Indication: CARDIAC FAILURE CONGESTIVE
     Dosage: 0.125MG  DAILY  PO
     Route: 048
     Dates: end: 20080424
  2. TORSEMIDE [Concomitant]
  3. CHLOROTHIAZ [Concomitant]
  4. NEXIUM [Concomitant]
  5. AMIODARONE HCL [Concomitant]
  6. LEVOTHYROXINE SODIUM [Concomitant]
  7. LIPITOR [Concomitant]
  8. RAMIPRIL [Concomitant]
  9. ALPRAZOLAM [Concomitant]
  10. LANOXIN [Concomitant]
  11. MIRTAZAPINE [Concomitant]
  12. ZOLPIDEM [Concomitant]
  13. SPIRONOLACTONE [Concomitant]
  14. SERTRALINE [Concomitant]
  15. CARVEDILOL [Concomitant]

REACTIONS (5)
  - FEELING ABNORMAL [None]
  - HAEMATEMESIS [None]
  - ISCHAEMIC CARDIOMYOPATHY [None]
  - MALAISE [None]
  - THERAPEUTIC AGENT TOXICITY [None]
